FAERS Safety Report 8497128-6 (Version None)
Quarter: 2012Q3

REPORT INFORMATION
  Report Type: 
  Country: None (occurrence: None)
  Receive Date: 20120709
  Receipt Date: 20120604
  Transmission Date: 20120928
  Serious: No
  Sender: FDA-Public Use
  Company Number: US-AMGEN-USASP2012034956

PATIENT
  Age: 51 Year
  Sex: Female

DRUGS (1)
  1. ENBREL [Suspect]
     Indication: PSORIASIS
     Dosage: 50 MG, QWK
     Dates: start: 20080601

REACTIONS (8)
  - SINUS DISORDER [None]
  - INJECTION SITE PAIN [None]
  - INJECTION SITE ERYTHEMA [None]
  - PSORIASIS [None]
  - COUGH [None]
  - INFLUENZA LIKE ILLNESS [None]
  - MALAISE [None]
  - INJECTION SITE HAEMORRHAGE [None]
